FAERS Safety Report 8036316-X (Version None)
Quarter: 2012Q1

REPORT INFORMATION
  Report Type: 
  Country: None (occurrence: None)
  Receive Date: 20120111
  Receipt Date: 20110920
  Transmission Date: 20120608
  Serious: No
  Sender: FDA-Public Use
  Company Number: US-GLAXOSMITHKLINE-A0945302A

PATIENT
  Age: 77 Year
  Sex: Male

DRUGS (3)
  1. JALYN [Suspect]
     Indication: BENIGN PROSTATIC HYPERPLASIA
     Dosage: 1CAP TWICE PER DAY
     Route: 048
     Dates: start: 20110620
  2. IBUPROFEN (ADVIL) [Concomitant]
     Indication: ARTHRITIS
  3. ACETAMINOPHEN [Concomitant]
     Indication: ARTHRITIS

REACTIONS (2)
  - DRUG INEFFECTIVE [None]
  - OVERDOSE [None]
